FAERS Safety Report 4318631-6 (Version None)
Quarter: 2004Q1

REPORT INFORMATION
  Report Type: 
  Country: None (occurrence: None)
  Receive Date: 20040315
  Receipt Date: 20040302
  Transmission Date: 20041129
  Serious: Yes (Hospitalization)
  Sender: FDA-Public Use
  Company Number: AT-JNJFOC-20040301079

PATIENT
  Sex: Male

DRUGS (2)
  1. INFLIXIMAB, RECOMBINANT- BLINDED (INFLIXIMAB, RECOMBINANT)  LYOPHILIZE [Suspect]
     Indication: COLITIS ULCERATIVE
     Dosage: INTRAVENOUS
     Route: 042
     Dates: start: 20040108
  2. INFLIXIMAB, RECOMBINANT- BLINDED (INFLIXIMAB, RECOMBINANT)  LYOPHILIZE [Suspect]
     Indication: COLITIS ULCERATIVE
     Dosage: INTRAVENOUS
     Route: 042
     Dates: start: 20040122

REACTIONS (1)
  - COLITIS ULCERATIVE [None]
